FAERS Safety Report 5568894-4 (Version None)
Quarter: 2007Q4

REPORT INFORMATION
  Report Type: 
  Country: None (occurrence: None)
  Receive Date: 20071220
  Receipt Date: 20070307
  Transmission Date: 20080405
  Serious: No
  Sender: FDA-Public Use
  Company Number: A0642081A

PATIENT
  Age: 64 Year
  Sex: Male

DRUGS (5)
  1. AVODART [Suspect]
     Dosage: .5MG PER DAY
     Route: 048
     Dates: start: 20060101
  2. CONTAC 12 HOUR [Suspect]
     Route: 048
     Dates: start: 20061001
  3. NEXIUM [Concomitant]
  4. FLOMAX [Concomitant]
  5. NAPROSYN [Concomitant]

REACTIONS (7)
  - BENIGN PROSTATIC HYPERPLASIA [None]
  - DRUG INEFFECTIVE [None]
  - DYSURIA [None]
  - GASTROOESOPHAGEAL REFLUX DISEASE [None]
  - PROSTATIC SPECIFIC ANTIGEN INCREASED [None]
  - STOMACH DISCOMFORT [None]
  - URINARY RETENTION [None]
